FAERS Safety Report 15859832 (Version 1)
Quarter: 2019Q1

REPORT INFORMATION
  Report Type: Spontaneous
  Country: AT (occurrence: AT)
  Receive Date: 20190123
  Receipt Date: 20190123
  Transmission Date: 20190417
  Serious: Yes (Other)
  Sender: FDA-Public Use
  Company Number: AT-MYLANLABS-2019M1005504

PATIENT
  Sex: Female

DRUGS (1)
  1. FENTANYL. [Suspect]
     Active Substance: FENTANYL
     Indication: EPIDURAL ANAESTHESIA
     Dosage: UNK
     Route: 008

REACTIONS (5)
  - Complication of delivery [Recovered/Resolved]
  - Product dispensing error [Unknown]
  - Toxicity to various agents [Unknown]
  - Maternal exposure during pregnancy [Recovered/Resolved]
  - Accidental overdose [Unknown]
